FAERS Safety Report 5046532-7 (Version None)
Quarter: 2006Q3

REPORT INFORMATION
  Report Type: 
  Country: None (occurrence: None)
  Receive Date: 20060706
  Receipt Date: 20060706
  Transmission Date: 20061208
  Serious: Yes (Other)
  Sender: FDA-Public Use
  Company Number: None

PATIENT
  Age: 25 Year
  Sex: Female
  Weight: 61.2356 kg

DRUGS (2)
  1. AVIANE-21 [Suspect]
     Indication: CONTRACEPTION
     Dosage: 1 TAB DAILY PO
     Route: 048
  2. AVIANE-21 [Suspect]
     Indication: ENDOMETRIOSIS
     Dosage: 1 TAB DAILY PO
     Route: 048

REACTIONS (9)
  - AGGRESSION [None]
  - ALOPECIA [None]
  - ANGER [None]
  - DEPRESSION [None]
  - FATIGUE [None]
  - HYPERSOMNIA [None]
  - IRRITABILITY [None]
  - MENORRHAGIA [None]
  - PERFORMANCE STATUS DECREASED [None]
